FAERS Safety Report 18514751 (Version 3)
Quarter: 2022Q2

REPORT INFORMATION
  Report Type: Other
  Country: JP (occurrence: JP)
  Receive Date: 20201117
  Receipt Date: 20220506
  Transmission Date: 20220721
  Serious: Yes (Hospitalization, Other)
  Sender: FDA-Public Use
  Company Number: JP-CHUGAI-A2020030169ROCHE

PATIENT
  Age: 67 Year
  Sex: Male
  Weight: 65 kg

DRUGS (11)
  1. OBINUTUZUMAB [Suspect]
     Active Substance: OBINUTUZUMAB
     Indication: Follicular lymphoma
     Route: 041
     Dates: start: 20200526, end: 20200526
  2. OBINUTUZUMAB [Suspect]
     Active Substance: OBINUTUZUMAB
     Route: 041
     Dates: start: 20200602, end: 20200602
  3. OBINUTUZUMAB [Suspect]
     Active Substance: OBINUTUZUMAB
     Route: 041
     Dates: start: 20200623, end: 20200623
  4. OBINUTUZUMAB [Suspect]
     Active Substance: OBINUTUZUMAB
     Route: 041
     Dates: start: 20200721, end: 20200721
  5. OBINUTUZUMAB [Suspect]
     Active Substance: OBINUTUZUMAB
     Route: 041
     Dates: start: 20200827, end: 20200827
  6. OBINUTUZUMAB [Suspect]
     Active Substance: OBINUTUZUMAB
     Route: 041
     Dates: start: 20200924, end: 20200924
  7. OBINUTUZUMAB [Suspect]
     Active Substance: OBINUTUZUMAB
     Route: 041
     Dates: start: 20201028, end: 20201028
  8. OBINUTUZUMAB [Suspect]
     Active Substance: OBINUTUZUMAB
     Route: 041
     Dates: start: 20210104, end: 20210104
  9. BENDAMUSTINE HYDROCHLORIDE [Suspect]
     Active Substance: BENDAMUSTINE HYDROCHLORIDE
     Indication: Follicular lymphoma
     Dosage: DATE OF MOST RECENT DOSE OF BENDAMUSTINE HYDROCHLORIDE: 25/SEP/2020
     Route: 041
     Dates: start: 20200527
  10. FILGRASTIM [Concomitant]
     Active Substance: FILGRASTIM
     Indication: Prophylaxis
     Route: 058
     Dates: start: 20200728, end: 20200728
  11. FILGRASTIM [Concomitant]
     Active Substance: FILGRASTIM
     Route: 058
     Dates: start: 20200804, end: 20200804

REACTIONS (7)
  - Agranulocytosis [Recovered/Resolved]
  - Neutrophil count decreased [Recovered/Resolved]
  - Infection [Recovered/Resolved]
  - Febrile neutropenia [Recovered/Resolved]
  - Infective aneurysm [Recovered/Resolved]
  - Campylobacter sepsis [Recovered/Resolved]
  - Infusion related reaction [Recovering/Resolving]

NARRATIVE: CASE EVENT DATE: 20200608
